FAERS Safety Report 15392543 (Version 1)
Quarter: 2018Q3

REPORT INFORMATION
  Report Type: Spontaneous
  Country: IN (occurrence: IN)
  Receive Date: 20180917
  Receipt Date: 20180917
  Transmission Date: 20181010
  Serious: Yes (Hospitalization)
  Sender: FDA-Public Use
  Company Number: IN-TASMAN PHARMA, INC.-2018TSM00090

PATIENT
  Age: 56 Year
  Sex: Male

DRUGS (3)
  1. RISPERIDONE. [Concomitant]
     Active Substance: RISPERIDONE
     Dosage: 6 MG IN ^DIVIDED DOSES^
  2. CLOZAPINE. [Suspect]
     Active Substance: CLOZAPINE
     Indication: SCHIZOPHRENIA
     Dosage: GRADUALLY INCREASED TO 200 MG WITHIN 2 WEEKS
     Route: 065
  3. RISPERIDONE. [Concomitant]
     Active Substance: RISPERIDONE
     Dosage: 4 MG IN ^DIVIDED DOSES^
     Route: 065

REACTIONS (2)
  - Pneumonia klebsiella [Recovered/Resolved]
  - Bicytopenia [Recovered/Resolved]
